FAERS Safety Report 9018607 (Version 1)
Quarter: 2013Q1

REPORT INFORMATION
  Report Type: Report from Study
  Country: US (occurrence: US)
  Receive Date: 20130118
  Receipt Date: 20130118
  Transmission Date: 20140127
  Serious: Yes (Hospitalization, Other)
  Sender: FDA-Public Use
  Company Number: US-JNJFOC-20130106143

PATIENT
  Sex: Female
  Weight: 47.63 kg

DRUGS (5)
  1. REMICADE [Suspect]
     Indication: CROHN^S DISEASE
     Route: 042
     Dates: start: 2007, end: 201112
  2. PREDNISONE [Concomitant]
     Indication: CROHN^S DISEASE
     Dosage: 2.5MG TO 5MG DAILY
     Route: 048
  3. VALACYCLOVIR HYDROCHLORIDE [Concomitant]
     Indication: ORAL HERPES
     Route: 048
  4. 6-MP [Concomitant]
     Indication: CROHN^S DISEASE
     Route: 048
  5. CALCIUM AND VIT D [Concomitant]

REACTIONS (6)
  - Drug ineffective [Unknown]
  - Ileostomy [Not Recovered/Not Resolved]
  - Weight increased [Not Recovered/Not Resolved]
  - Blood cholesterol increased [Unknown]
  - Abnormal loss of weight [Recovered/Resolved]
  - Surgery [Unknown]
